FAERS Safety Report 14676075 (Version 2)
Quarter: 2018Q4

REPORT INFORMATION
  Report Type: Spontaneous
  Country: US (occurrence: US)
  Receive Date: 20180323
  Receipt Date: 20181227
  Transmission Date: 20190204
  Serious: Yes (Other)
  Sender: FDA-Public Use
  Company Number: US-GE HEALTHCARE LIFE SCIENCES-2018CSU001108

PATIENT
  Age: 22 Year
  Sex: Female

DRUGS (1)
  1. OMNISCAN [Suspect]
     Active Substance: GADODIAMIDE
     Indication: PROLACTIN-PRODUCING PITUITARY TUMOUR
     Dosage: 10 ML, SINGLE
     Route: 042
     Dates: start: 20180316, end: 20180316

REACTIONS (2)
  - Pulse absent [Recovered/Resolved]
  - Seizure [Recovering/Resolving]

NARRATIVE: CASE EVENT DATE: 20180316
